FAERS Safety Report 23631019 (Version 1)
Quarter: 2024Q1

REPORT INFORMATION
  Report Type: Spontaneous
  Country: US (occurrence: US)
  Receive Date: 20240314
  Receipt Date: 20240314
  Transmission Date: 20240410
  Serious: No
  Sender: FDA-Public Use
  Company Number: US-SPECGX-T202301689

PATIENT

DRUGS (1)
  1. DEXTROAMPHETAMINE SULFATE [Suspect]
     Active Substance: DEXTROAMPHETAMINE SULFATE
     Indication: Product used for unknown indication
     Dosage: UNK
     Route: 065
     Dates: start: 202301

REACTIONS (12)
  - Hypersomnia [Unknown]
  - Listless [Unknown]
  - Emotional poverty [Unknown]
  - Migraine [Unknown]
  - Anger [Unknown]
  - Fatigue [Unknown]
  - Nausea [Unknown]
  - Muscle spasms [Unknown]
  - Eye disorder [Unknown]
  - Skin disorder [Unknown]
  - Abdominal discomfort [Unknown]
  - Drug ineffective [Unknown]
